FAERS Safety Report 9464161 (Version 11)
Quarter: 2015Q3

REPORT INFORMATION
  Report Type: Report from Study
  Country: CA (occurrence: CA)
  Receive Date: 20130819
  Receipt Date: 20150818
  Transmission Date: 20151125
  Serious: Yes (Other)
  Sender: FDA-Public Use
  Company Number: PHHY2013CA052347

PATIENT
  Age: 56 Year
  Sex: Female

DRUGS (1)
  1. SANDOSTATIN LAR DEPOT [Suspect]
     Active Substance: OCTREOTIDE ACETATE
     Indication: HEPATIC CANCER METASTATIC
     Dosage: 30 MG, QMO
     Route: 030
     Dates: start: 20130424

REACTIONS (13)
  - Photophobia [Unknown]
  - Pneumonia [Unknown]
  - Cough [Unknown]
  - Nasopharyngitis [Unknown]
  - Dizziness [Unknown]
  - Head discomfort [Unknown]
  - Blood pressure increased [Unknown]
  - Body temperature decreased [Unknown]
  - Needle issue [Unknown]
  - Encephalitis [Unknown]
  - Off label use [Unknown]
  - Encephalopathy [Unknown]
  - Pyrexia [Unknown]

NARRATIVE: CASE EVENT DATE: 201305
